FAERS Safety Report 6069646-1 (Version None)
Quarter: 2009Q1

REPORT INFORMATION
  Report Type: 
  Country: None (occurrence: None)
  Receive Date: 20090209
  Receipt Date: 20090130
  Transmission Date: 20090719
  Serious: No
  Sender: FDA-Public Use
  Company Number: US-JNJFOC-20090200557

PATIENT
  Sex: Male
  Weight: 113.4 kg

DRUGS (8)
  1. FENTANYL TRANSDERMAL SYSTEM [Suspect]
     Route: 062
  2. FENTANYL TRANSDERMAL SYSTEM [Suspect]
     Route: 062
  3. FENTANYL TRANSDERMAL SYSTEM [Suspect]
     Indication: ABDOMINAL PAIN UPPER
     Route: 062
  4. AMITRIPTYLINE HCL [Concomitant]
     Indication: POOR QUALITY SLEEP
     Route: 048
  5. FLOMAX [Concomitant]
     Route: 048
  6. LORTAB [Concomitant]
     Indication: PAIN
     Route: 048
  7. CLONIDINE HCL [Concomitant]
     Indication: BLOOD PRESSURE
     Route: 048
  8. SIMVASTATIN [Concomitant]
     Indication: BLOOD CHOLESTEROL
     Route: 048

REACTIONS (1)
  - INCORRECT DOSE ADMINISTERED [None]
